FAERS Safety Report 10651677 (Version 3)
Quarter: 2014Q4

REPORT INFORMATION
  Report Type: Report from Study
  Country: KR (occurrence: KR)
  Receive Date: 20141215
  Receipt Date: 20141223
  Transmission Date: 20150529
  Serious: Yes (Hospitalization)
  Sender: FDA-Public Use
  Company Number: KR-009507513-1407KOR012070

PATIENT
  Age: 52 Year
  Sex: Male
  Weight: 63.3 kg

DRUGS (4)
  1. PEMBROLIZUMAB. [Suspect]
     Active Substance: PEMBROLIZUMAB
     Indication: NEOPLASM MALIGNANT
     Dosage: 10 MG/KG,  EVERY 2 WEEKS
     Route: 042
     Dates: start: 20140717, end: 20140717
  2. PEMBROLIZUMAB. [Suspect]
     Active Substance: PEMBROLIZUMAB
     Indication: BILE DUCT ADENOCARCINOMA
     Dosage: 10 MG/KG,  EVERY 2 WEEKS
     Route: 042
     Dates: start: 20140605, end: 20140703
  3. PEMBROLIZUMAB. [Suspect]
     Active Substance: PEMBROLIZUMAB
     Dosage: 10 MG/KG,  EVERY 2 WEEKS
     Route: 042
     Dates: start: 20140828
  4. MAGO [Concomitant]
     Indication: BILE DUCT CANCER
     Dosage: 500 MG, BID
     Route: 048
     Dates: start: 20140513, end: 20140726

REACTIONS (1)
  - Device related infection [Recovered/Resolved]

NARRATIVE: CASE EVENT DATE: 20140717
